FAERS Safety Report 4358947-0 (Version None)
Quarter: 2004Q2

REPORT INFORMATION
  Report Type: 
  Country: None (occurrence: None)
  Receive Date: 20040511
  Receipt Date: 20040428
  Transmission Date: 20050107
  Serious: Yes (Other)
  Sender: FDA-Public Use
  Company Number: 20040400291

PATIENT

DRUGS (2)
  1. ATIVAN [Suspect]
  2. SEROQUEL [Suspect]

REACTIONS (8)
  - AGITATION [None]
  - CRANIOSYNOSTOSIS [None]
  - DRUG WITHDRAWAL SYNDROME NEONATAL [None]
  - FEEDING PROBLEM IN NEWBORN [None]
  - HYPERTONIA [None]
  - NASAL FLARING [None]
  - NEONATAL RESPIRATORY DISTRESS SYNDROME [None]
  - PYREXIA [None]
